FAERS Safety Report 13340643 (Version 1)
Quarter: 2017Q1

REPORT INFORMATION
  Report Type: Report from Study
  Country: ZA (occurrence: ZA)
  Receive Date: 20170316
  Receipt Date: 20170316
  Transmission Date: 20170428
  Serious: Yes (Death)
  Sender: FDA-Public Use
  Company Number: PHHY2017ZA040212

PATIENT
  Age: 83 Year
  Sex: Male

DRUGS (7)
  1. CALCIFEROL [Concomitant]
     Active Substance: ERGOCALCIFEROL
     Indication: PRODUCT USED FOR UNKNOWN INDICATION
     Dosage: 50000 IU, UNK
     Route: 048
     Dates: start: 20160917, end: 20170222
  2. ALLOPURINOL SANDOZ [Suspect]
     Active Substance: ALLOPURINOL
     Indication: GOUT
     Dosage: 300 MG, UNK
     Route: 048
     Dates: start: 20160917, end: 20170222
  3. LANTUS [Concomitant]
     Active Substance: INSULIN GLARGINE
     Indication: DIABETES MELLITUS
     Dosage: 100 IU, UNK
     Route: 065
     Dates: start: 20160917, end: 20170222
  4. DYNA-PENTOXIFYLLIN [Concomitant]
     Active Substance: PENTOXIFYLLINE
     Indication: POOR PERIPHERAL CIRCULATION
     Dosage: 400 MG, UNK
     Route: 048
     Dates: start: 20160917, end: 20170222
  5. BILOCOR [Concomitant]
     Active Substance: BISOPROLOL FUMARATE
     Indication: BLOOD PRESSURE ABNORMAL
     Dosage: 5 MG, UNK
     Route: 048
     Dates: start: 20160917, end: 20170222
  6. PURESIS [Concomitant]
     Active Substance: FUROSEMIDE
     Indication: DIURETIC THERAPY
     Dosage: 40 MG, UNK
     Route: 048
     Dates: start: 20160917, end: 20170222
  7. NOVORAPID [Concomitant]
     Active Substance: INSULIN ASPART
     Indication: DIABETES MELLITUS
     Dosage: 100 IU, UNK
     Route: 065
     Dates: start: 20160917, end: 20170222

REACTIONS (1)
  - Renal failure [Fatal]
